FAERS Safety Report 9251456 (Version 1)
Quarter: 2013Q1

REPORT INFORMATION
  Report Type: Spontaneous
  Country: US (occurrence: None)
  Receive Date: 20130305
  Receipt Date: 20130305
  Transmission Date: 20140127
  Serious: Yes (Hospitalization, Other)
  Sender: FDA-Public Use
  Company Number: 163-21880-12042349

PATIENT
  Age: 82 Year
  Sex: Female
  Weight: 52.16 kg

DRUGS (5)
  1. REVLIMID [Suspect]
     Indication: PLASMA CELL MYELOMA
     Dosage: 15 MG, DAILY X 21 DAYS, PO
     Route: 048
     Dates: start: 20110721, end: 201204
  2. COUMADIN (WARFARIN SODIUM) (UNKNOWN) [Concomitant]
     Dosage: 5 MG, UNK
  3. LEVOTHYROXINE (LEVOTHYROXINE) (UNKNOWN) [Concomitant]
     Dosage: 75 UG, QD, UNK
  4. ATENOLOL (ATENOLOL) (UNKNOWN) [Concomitant]
     Dosage: 50 MG, QD, UNK
  5. DEXAMETHASONE (DEXAMETHASONE) (UNKNOWN) [Concomitant]
     Dosage: 20 MG, Q WEEK, UNK

REACTIONS (2)
  - Deep vein thrombosis [None]
  - Pneumonia [None]
